FAERS Safety Report 18951547 (Version 3)
Quarter: 2025Q2

REPORT INFORMATION
  Report Type: Spontaneous
  Country: IT (occurrence: IT)
  Receive Date: 20210301
  Receipt Date: 20250428
  Transmission Date: 20250716
  Serious: Yes (Other)
  Sender: AUROBINDO
  Company Number: IT-002147023-NVSC2021IT034193

PATIENT
  Age: 46 Year
  Sex: Male

DRUGS (4)
  1. LAMIVUDINE [Interacting]
     Active Substance: LAMIVUDINE
     Indication: HIV infection
     Route: 065
  2. ATAZANAVIR [Interacting]
     Active Substance: ATAZANAVIR
     Indication: HIV infection
     Route: 065
  3. BUDESONIDE [Interacting]
     Active Substance: BUDESONIDE
     Indication: Chronic obstructive pulmonary disease
  4. RITONAVIR [Interacting]
     Active Substance: RITONAVIR
     Indication: HIV infection
     Route: 065

REACTIONS (3)
  - Drug interaction [Unknown]
  - Adrenal insufficiency [Recovered/Resolved]
  - Pseudo Cushing^s syndrome [Recovered/Resolved]
